FAERS Safety Report 7493894-7 (Version None)
Quarter: 2011Q2

REPORT INFORMATION
  Report Type: 
  Country: None (occurrence: None)
  Receive Date: 20110520
  Receipt Date: 20110511
  Transmission Date: 20111010
  Serious: Yes (Other)
  Sender: FDA-Public Use
  Company Number: CA-ROCHE-746997

PATIENT
  Sex: Female
  Weight: 82 kg

DRUGS (10)
  1. CALCIUM CARBONATE [Concomitant]
  2. BEVACIZUMAB [Suspect]
     Dosage: FORM INFUSION
     Route: 042
     Dates: start: 20101117
  3. ALTACE [Concomitant]
  4. BENADRYL [Concomitant]
     Indication: PREMEDICATION
     Dosage: ONCE
     Route: 048
     Dates: start: 20101222, end: 20101222
  5. SOLU-MEDROL [Concomitant]
     Indication: PREMEDICATION
     Dosage: ONCE
     Route: 042
     Dates: start: 20101222, end: 20101222
  6. SOLU-MEDROL [Concomitant]
     Dosage: FREQUENCY: ONCE
     Route: 042
     Dates: start: 20110316, end: 20110316
  7. LIPITOR [Concomitant]
  8. LOPRESSOR [Concomitant]
  9. BEVACIZUMAB [Suspect]
     Route: 042
  10. ASPIRIN [Concomitant]

REACTIONS (7)
  - FATIGUE [None]
  - CONSTIPATION [None]
  - HYPERTENSION [None]
  - LIVER DISORDER [None]
  - MUSCULOSKELETAL PAIN [None]
  - NASOPHARYNGITIS [None]
  - COUGH [None]
